FAERS Safety Report 10601342 (Version 1)
Quarter: 2014Q4

REPORT INFORMATION
  Report Type: Spontaneous
  Country: US (occurrence: US)
  Receive Date: 20141124
  Receipt Date: 20141124
  Transmission Date: 20150529
  Serious: Yes (Hospitalization)
  Sender: FDA-Public Use
  Company Number: US-BAYER-2014-170395

PATIENT
  Age: 20 Year
  Sex: Female
  Weight: 84.81 kg

DRUGS (6)
  1. YAZ [Suspect]
     Active Substance: DROSPIRENONE\ETHINYL ESTRADIOL
  2. FAMOTIDINE. [Concomitant]
     Active Substance: FAMOTIDINE
     Dosage: 20 MG, BID
     Route: 048
  3. TRAMADOL [Concomitant]
     Active Substance: TRAMADOL
  4. NEXIUM [Concomitant]
     Active Substance: ESOMEPRAZOLE MAGNESIUM
  5. HYDROCODONE BIT/APAP [Concomitant]
     Active Substance: ACETAMINOPHEN\HYDROCODONE BITARTRATE
     Dosage: 5 MG/500 MG 1 T (INTERPRETED AS TABLET) Q 6 H PRN (INTERPRETED AS HOURS AS NEEDED)
     Route: 048
  6. VICODIN [Concomitant]
     Active Substance: ACETAMINOPHEN\HYDROCODONE BITARTRATE

REACTIONS (3)
  - Deep vein thrombosis [None]
  - Vena cava thrombosis [None]
  - Pelvic venous thrombosis [None]

NARRATIVE: CASE EVENT DATE: 20090617
